FAERS Safety Report 10180730 (Version 1)
Quarter: 2014Q2

REPORT INFORMATION
  Report Type: Spontaneous
  Country: US (occurrence: US)
  Receive Date: 20140519
  Receipt Date: 20140519
  Transmission Date: 20141212
  Serious: Yes (Death, Hospitalization, Other)
  Sender: FDA-Public Use
  Company Number: US-TEVA-481586USA

PATIENT
  Sex: Male

DRUGS (2)
  1. PROVIGIL [Suspect]
     Indication: LUNG NEOPLASM MALIGNANT
     Route: 048
  2. HYDROCODONE [Concomitant]
     Indication: PAIN

REACTIONS (7)
  - Cardiac arrest [Fatal]
  - Oesophageal disorder [Unknown]
  - Lung disorder [Unknown]
  - Haemorrhage [Unknown]
  - Feeling abnormal [Unknown]
  - Sleep apnoea syndrome [Unknown]
  - Off label use [Unknown]
